FAERS Safety Report 22594726 (Version 1)
Quarter: 2023Q2

REPORT INFORMATION
  Report Type: Spontaneous
  Country: CN (occurrence: CN)
  Receive Date: 20230613
  Receipt Date: 20230613
  Transmission Date: 20230721
  Serious: Yes (Hospitalization)
  Sender: FDA-Public Use
  Company Number: CN-PFIZER INC-PV202300101850

PATIENT
  Age: 38 Year
  Sex: Male

DRUGS (4)
  1. EPIRUBICIN [Suspect]
     Active Substance: EPIRUBICIN
     Indication: Hepatic cancer
     Dosage: 60 MG, 1X/DAY (VIA HEPATIC ARTERIAL INFUSION)
     Dates: start: 20230523, end: 20230523
  2. FLUOROURACIL [Suspect]
     Active Substance: FLUOROURACIL
     Indication: Hepatic cancer
     Dosage: 500 MG, 1X/DAY (VIA HEPATIC ARTERIAL INFUSION)
     Dates: start: 20230523, end: 20230523
  3. RALTITREXED [Suspect]
     Active Substance: RALTITREXED
     Indication: Hepatic cancer
     Dosage: 4 MG, 1X/DAY (VIA HEPATIC ARTERIAL INFUSION)
     Dates: start: 20230523, end: 20230523
  4. IODINE [Suspect]
     Active Substance: IODINE
     Indication: Hepatic cancer
     Dosage: 20 ML, 1X/DAY (VIA HEPATIC ARTERIAL INFUSION)
     Dates: start: 20230523, end: 20230523

REACTIONS (1)
  - Hepatic function abnormal [Recovering/Resolving]

NARRATIVE: CASE EVENT DATE: 20230526
